FAERS Safety Report 7377835-9 (Version None)
Quarter: 2011Q1

REPORT INFORMATION
  Report Type: 
  Country: None (occurrence: None)
  Receive Date: 20110328
  Receipt Date: 20110316
  Transmission Date: 20110831
  Serious: Yes (Death, Hospitalization)
  Sender: FDA-Public Use
  Company Number: DE-ROCHE-766699

PATIENT
  Sex: Female

DRUGS (5)
  1. PREDNISOLONE [Suspect]
     Indication: RHEUMATOID ARTHRITIS
     Route: 065
     Dates: start: 20070101
  2. TOCILIZUMAB [Suspect]
     Dosage: ONE INFUSION
     Route: 042
     Dates: start: 20100928, end: 20100928
  3. TAUREDON [Suspect]
     Indication: RHEUMATOID ARTHRITIS
     Route: 065
     Dates: end: 20101201
  4. CYCLOSPORINE [Concomitant]
     Dates: start: 20071201, end: 20090301
  5. TOCILIZUMAB [Suspect]
     Indication: RHEUMATOID ARTHRITIS
     Route: 042
     Dates: start: 20090301, end: 20090801

REACTIONS (6)
  - ACUTE ABDOMEN [None]
  - DIVERTICULAR PERFORATION [None]
  - CHOLECYSTITIS [None]
  - SEPTIC SHOCK [None]
  - TACHYARRHYTHMIA [None]
  - ENTEROVESICAL FISTULA [None]
